FAERS Safety Report 9476670 (Version 1)
Quarter: 2013Q3

REPORT INFORMATION
  Report Type: Spontaneous
  Country: US (occurrence: US)
  Receive Date: 20130826
  Receipt Date: 20130826
  Transmission Date: 20140515
  Serious: Yes (Other)
  Sender: FDA-Public Use
  Company Number: US-BRISTOL-MYERS SQUIBB COMPANY-18914796

PATIENT
  Sex: 0

DRUGS (1)
  1. KENALOG-10 INJ [Suspect]
     Dosage: 1DF:10MG IN 1ML
     Route: 008
     Dates: start: 20121009

REACTIONS (2)
  - Cerebrovascular accident [Unknown]
  - Incorrect route of drug administration [Unknown]
